FAERS Safety Report 23830870 (Version 1)
Quarter: 2024Q2

REPORT INFORMATION
  Report Type: Spontaneous
  Country: DE (occurrence: DE)
  Receive Date: 20240508
  Receipt Date: 20240508
  Transmission Date: 20240715
  Serious: Yes (Other)
  Sender: FDA-Public Use
  Company Number: DE-JNJFOC-20080401906

PATIENT
  Age: 37 Year
  Sex: Male
  Weight: 75 kg

DRUGS (4)
  1. DOXYCYCLINE HYCLATE [Suspect]
     Active Substance: DOXYCYCLINE HYCLATE
     Dosage: 2400 MG
     Route: 048
     Dates: start: 20080408, end: 20080408
  2. PIPAMPERONE [Suspect]
     Active Substance: PIPAMPERONE
     Dosage: 480 MG
     Route: 048
     Dates: start: 20080408, end: 20080408
  3. IBUPROFEN [Suspect]
     Active Substance: IBUPROFEN
     Dosage: 4400 MG
     Route: 048
     Dates: start: 20080408, end: 20080408
  4. ALCOHOL [Suspect]
     Active Substance: ALCOHOL
     Dosage: UNK
     Route: 048
     Dates: start: 20080408, end: 20080408

REACTIONS (2)
  - Intentional overdose [Unknown]
  - Suicide attempt [Unknown]

NARRATIVE: CASE EVENT DATE: 20080408
